FAERS Safety Report 11680529 (Version 3)
Quarter: 2015Q4

REPORT INFORMATION
  Report Type: Spontaneous
  Country: US (occurrence: US)
  Receive Date: 20151027
  Receipt Date: 20151110
  Transmission Date: 20160304
  Serious: No
  Sender: FDA-Public Use
  Company Number: US-ELI_LILLY_AND_COMPANY-US201009005135

PATIENT
  Sex: Female

DRUGS (2)
  1. FORTEO [Suspect]
     Active Substance: TERIPARATIDE
     Dosage: 20 UG, DAILY (1/D)
     Route: 065
     Dates: end: 20100914
  2. FORTEO [Suspect]
     Active Substance: TERIPARATIDE
     Indication: OSTEOPOROSIS
     Dosage: 20 UG, DAILY (1/D)
     Route: 065
     Dates: start: 20100622

REACTIONS (11)
  - Aphonia [Unknown]
  - Fatigue [Unknown]
  - Abnormal dreams [Unknown]
  - Anxiety [Unknown]
  - Muscle spasms [Unknown]
  - Bronchitis [Unknown]
  - Asthenopia [Unknown]
  - Dyspnoea [Unknown]
  - Nervousness [Unknown]
  - Insomnia [Unknown]
  - Malaise [Not Recovered/Not Resolved]
